FAERS Safety Report 6875646-1 (Version None)
Quarter: 2010Q3

REPORT INFORMATION
  Report Type: 
  Country: None (occurrence: None)
  Receive Date: 20100727
  Receipt Date: 20100716
  Transmission Date: 20110219
  Serious: Yes (Other)
  Sender: FDA-Public Use
  Company Number: US-ASTRAZENECA-2010SE33307

PATIENT
  Age: 41 Year
  Sex: Female
  Weight: 81.6 kg

DRUGS (6)
  1. NEXIUM [Suspect]
     Indication: DYSPEPSIA
     Route: 048
     Dates: start: 20030101
  2. LASIX [Concomitant]
  3. LEBETALOL [Concomitant]
  4. ASPIRIN [Concomitant]
  5. VITAMINS [Concomitant]
  6. SYNTHROID [Concomitant]

REACTIONS (2)
  - DRUG INEFFECTIVE [None]
  - IMPLANTABLE DEFIBRILLATOR INSERTION [None]
